APPROVED DRUG PRODUCT: REPREXAIN
Active Ingredient: HYDROCODONE BITARTRATE; IBUPROFEN
Strength: 10MG;200MG
Dosage Form/Route: TABLET;ORAL
Application: A076642 | Product #004
Applicant: AMNEAL PHARMACEUTICALS NY LLC
Approved: Oct 19, 2007 | RLD: No | RS: No | Type: DISCN